FAERS Safety Report 8619439-3 (Version None)
Quarter: 2012Q3

REPORT INFORMATION
  Report Type: 
  Country: None (occurrence: None)
  Receive Date: 20120824
  Receipt Date: 20120817
  Transmission Date: 20120928
  Serious: Yes (Death, Hospitalization)
  Sender: FDA-Public Use
  Company Number: CZ-BAYER-201047347GPV

PATIENT
  Age: 78 Year
  Sex: Female
  Weight: 58 kg

DRUGS (7)
  1. ENALAPRIL MALEATE [Concomitant]
     Indication: HYPERTENSION
     Dosage: 10 MG (DAILY DOSE), , UNKNOWN
     Route: 048
     Dates: start: 20080101, end: 20100724
  2. FUROSEMIDE [Concomitant]
     Indication: HYPERTENSION
     Dosage: DAILY DOSE 40 MG
     Route: 048
     Dates: start: 20080101, end: 20100724
  3. NEXAVAR [Suspect]
     Dosage: 400MG DAILY
     Route: 048
     Dates: start: 20100603, end: 20100617
  4. SPIRONOLACTONE [Concomitant]
     Indication: HYPERTENSION
     Dosage: DAILY DOSE 50 MG
     Route: 048
     Dates: start: 20100622, end: 20100724
  5. NEXAVAR [Suspect]
     Indication: HEPATIC NEOPLASM MALIGNANT
     Dosage: 800MG DAILY
     Route: 048
     Dates: start: 20100420, end: 20100602
  6. FUROSEMIDUM [Concomitant]
     Indication: HYPERTENSION
     Dosage: 40 MG (DAILY DOSE), , UNKNOWN
     Route: 065
     Dates: start: 20080101, end: 20100724
  7. FUROSEMIDUM [Concomitant]

REACTIONS (2)
  - CARDIAC FAILURE [None]
  - MALNUTRITION [None]
